FAERS Safety Report 10204874 (Version 2)
Quarter: 2014Q2

REPORT INFORMATION
  Report Type: Report from Study
  Country: FR (occurrence: FR)
  Receive Date: 20140529
  Receipt Date: 20140529
  Transmission Date: 20141212
  Serious: Yes (Hospitalization, Other)
  Sender: FDA-Public Use
  Company Number: FR-BRISTOL-MYERS SQUIBB COMPANY-14279145

PATIENT
  Age: 45 Year
  Sex: Male

DRUGS (10)
  1. BELATACEPT [Suspect]
     Indication: RENAL TRANSPLANT
     Dosage: NO OF COURSES=2
     Route: 042
     Dates: start: 20080524, end: 20080813
  2. OMEPRAZOLE [Concomitant]
     Dates: start: 20070524
  3. BACTRIM FORTE [Concomitant]
     Dosage: STOPPED 20JAN08; RESTARTED 21MAY08
     Dates: start: 20070528
  4. PREDNISONE [Concomitant]
     Dates: start: 20070527
  5. VALGANCICLOVIR [Concomitant]
     Dosage: STOPPED 30SEP07; RESTARTED 05DEC07
     Dates: start: 20070526
  6. PENTACARINAT [Concomitant]
     Dates: start: 20080130
  7. BISOPROLOL [Concomitant]
     Indication: HYPERTENSION
     Dates: start: 20071213
  8. VALSARTAN [Concomitant]
     Indication: HYPERTENSION
     Dates: start: 20071213
  9. LEFLUNOMIDE [Concomitant]
     Dates: start: 20080314
  10. ATORVASTATIN [Concomitant]
     Dates: start: 20080325

REACTIONS (1)
  - B-cell lymphoma [Not Recovered/Not Resolved]
